FAERS Safety Report 11696330 (Version 1)
Quarter: 2015Q4

REPORT INFORMATION
  Report Type: Report from Study
  Country: TW (occurrence: TW)
  Receive Date: 20151104
  Receipt Date: 20151104
  Transmission Date: 20160304
  Serious: Yes (Death)
  Sender: FDA-Public Use
  Company Number: TW-MYLANLABS-2015M1037454

PATIENT

DRUGS (3)
  1. VINBLASTINE [Suspect]
     Active Substance: VINBLASTINE
     Indication: TERATOMA
     Route: 065
  2. CISPLATIN. [Suspect]
     Active Substance: CISPLATIN
     Indication: TERATOMA
     Route: 065
  3. BLEOMYCIN [Suspect]
     Active Substance: BLEOMYCIN SULFATE
     Indication: TERATOMA
     Route: 065

REACTIONS (3)
  - Pulmonary fibrosis [Fatal]
  - Pneumonia [Fatal]
  - Respiratory failure [Fatal]
